FAERS Safety Report 13852475 (Version 1)
Quarter: 2017Q3

REPORT INFORMATION
  Report Type: Spontaneous
  Country: US (occurrence: US)
  Receive Date: 20170809
  Receipt Date: 20170809
  Transmission Date: 20171127
  Serious: No
  Sender: FDA-Public Use
  Company Number: US-ROCHE-547874

PATIENT
  Age: 55 Year
  Sex: Female
  Weight: 62.1 kg

DRUGS (6)
  1. SIMVASTATIN. [Concomitant]
     Active Substance: SIMVASTATIN
     Route: 065
  2. VITAMIN [Concomitant]
     Active Substance: VITAMINS
     Route: 065
  3. CALCIUM [Concomitant]
     Active Substance: CALCIUM
     Route: 065
  4. BONIVA [Suspect]
     Active Substance: IBANDRONATE SODIUM
     Indication: OSTEOPENIA
     Dosage: DURATION: 2.5 YEARS
     Route: 048
     Dates: start: 200707, end: 20091101
  5. ORACEA [Concomitant]
     Active Substance: DOXYCYCLINE
     Route: 065
  6. CYMBALTA [Concomitant]
     Active Substance: DULOXETINE HYDROCHLORIDE
     Route: 065

REACTIONS (9)
  - Haemoglobin increased [Unknown]
  - Palpitations [Not Recovered/Not Resolved]
  - Acne [Unknown]
  - Blood pressure increased [Unknown]
  - Heart rate irregular [Not Recovered/Not Resolved]
  - Dizziness [Not Recovered/Not Resolved]
  - Gingival recession [Not Recovered/Not Resolved]
  - Heart rate increased [Not Recovered/Not Resolved]
  - Perichondritis [Unknown]

NARRATIVE: CASE EVENT DATE: 20080129
